FAERS Safety Report 18880264 (Version 3)
Quarter: 2021Q2

REPORT INFORMATION
  Report Type: Report from Study
  Country: CA (occurrence: CA)
  Receive Date: 20210211
  Receipt Date: 20210603
  Transmission Date: 20210717
  Serious: Yes (Other)
  Sender: FDA-Public Use
  Company Number: CA-TAKEDA-2020TUS043448

PATIENT
  Age: 72 Year
  Sex: Female

DRUGS (6)
  1. LAMOTRIGINE. [Concomitant]
     Active Substance: LAMOTRIGINE
     Dosage: UNK UNK, QD
  2. VEDOLIZUMAB [Suspect]
     Active Substance: VEDOLIZUMAB
     Dosage: 300 MILLIGRAM
     Route: 042
     Dates: end: 20210204
  3. MEZAVANT [Concomitant]
     Active Substance: MESALAMINE
     Dosage: UNK
  4. VEDOLIZUMAB [Suspect]
     Active Substance: VEDOLIZUMAB
     Indication: CROHN^S DISEASE
     Dosage: 300 MILLIGRAM
     Route: 042
     Dates: start: 20200901
  5. BUDESONIDE. [Concomitant]
     Active Substance: BUDESONIDE
     Dosage: UNK
  6. SALOFALK [Concomitant]
     Dosage: UNK

REACTIONS (6)
  - Haemorrhoids [Unknown]
  - Anal fissure [Unknown]
  - Drug ineffective [Unknown]
  - Haematochezia [Unknown]
  - Frequent bowel movements [Unknown]
  - Defaecation urgency [Unknown]
